FAERS Safety Report 19076108 (Version 4)
Quarter: 2021Q2

REPORT INFORMATION
  Report Type: Report from Study
  Country: US (occurrence: US)
  Receive Date: 20210330
  Receipt Date: 20210601
  Transmission Date: 20210717
  Serious: Yes (Other)
  Sender: FDA-Public Use
  Company Number: NVSC2021US067992

PATIENT
  Sex: Male

DRUGS (3)
  1. ENTRESTO [Suspect]
     Active Substance: SACUBITRIL\VALSARTAN
     Dosage: UNK
     Route: 048
  2. ENTRESTO [Suspect]
     Active Substance: SACUBITRIL\VALSARTAN
     Indication: PRODUCT USED FOR UNKNOWN INDICATION
     Dosage: 50 MG, BID (24/26 MG)
     Route: 048
  3. ENTRESTO [Suspect]
     Active Substance: SACUBITRIL\VALSARTAN
     Dosage: 100 MG, BID (49/51 MG)
     Route: 065

REACTIONS (7)
  - Wrong technique in product usage process [Unknown]
  - Heart rate increased [Unknown]
  - Prostate cancer [Unknown]
  - Prostatic specific antigen increased [Unknown]
  - Fatigue [Unknown]
  - Dizziness [Recovering/Resolving]
  - Hypotension [Unknown]
